FAERS Safety Report 22202410 (Version 1)
Quarter: 2023Q2

REPORT INFORMATION
  Report Type: Spontaneous
  Country: SI (occurrence: SI)
  Receive Date: 20230412
  Receipt Date: 20230412
  Transmission Date: 20230721
  Serious: Yes (Hospitalization)
  Sender: FDA-Public Use
  Company Number: None

PATIENT
  Age: 73 Year
  Sex: Male

DRUGS (15)
  1. MEDROL [Suspect]
     Active Substance: METHYLPREDNISOLONE
     Indication: Gout
     Dosage: 1 TBL IN THE MORNING
     Route: 048
  2. DICLOFENAC SODIUM [Suspect]
     Active Substance: DICLOFENAC SODIUM
     Indication: Gout
     Dosage: 2X1
     Route: 048
  3. FUROSEMIDE [Suspect]
     Active Substance: FUROSEMIDE
     Indication: Cardiac failure
     Dosage: 125 MG IN 100 MG OF PHYSIOLOGICAL SOLUTION, AT A RATE OF 4 ML/H,
     Route: 042
  4. PANTOPRAZOLE SODIUM [Concomitant]
     Active Substance: PANTOPRAZOLE SODIUM
     Indication: Prophylaxis
     Dosage: 1 TBL IN THE MORNING, LONG-TERM THERAPY
  5. NADROPARIN CALCIUM [Concomitant]
     Active Substance: NADROPARIN CALCIUM
     Indication: Hypertension
     Dosage: 1.0 ML EVERY 12 HOURS, IN CASE OF DETERIORATION OF RENAL FUNCTION 1.0ML EVERY 24 HOURS, THEN 0.6ML E
  6. ALDACTONE [Concomitant]
     Active Substance: SPIRONOLACTONE
     Indication: Hypertension
     Dosage: 1 TBL IN THE MORNING (UNTIL 20 MARCH THEN DISCONTINUED), LONG-TERM THERAPY
  7. ALDACTONE [Concomitant]
     Active Substance: SPIRONOLACTONE
     Indication: Cardiac failure
  8. LASIX [Concomitant]
     Active Substance: FUROSEMIDE
     Indication: Cardiac failure
     Dosage: 2 TBL IN THE MORNINGS AFTER STOPPING THE I.V. INFUSIONS OF FUROSEMIDE
  9. LACIDIPINE [Concomitant]
     Active Substance: LACIDIPINE
     Indication: Ischaemic cardiomyopathy
     Dosage: 1X1, LONG-TERM THERAPY
  10. LACIDIPINE [Concomitant]
     Active Substance: LACIDIPINE
     Indication: Hypertension
  11. TRIMETAZIDINE DIHYDROCHLORIDE [Concomitant]
     Active Substance: TRIMETAZIDINE DIHYDROCHLORIDE
     Indication: Ischaemic cardiomyopathy
     Dosage: 2X1, LONG-TERM THERAPY
  12. ROSUVASTATIN CALCIUM [Concomitant]
     Active Substance: ROSUVASTATIN CALCIUM
     Indication: Hyperlipidaemia
     Dosage: 1X1, LONG-TERM THERAPY
  13. PERINDOPRIL [Concomitant]
     Active Substance: PERINDOPRIL
     Indication: Hypertension
     Dosage: 1 TABLET IN THE MORNINGS UNTIL 20 MARCH WITH ACUTE RENAL FAILURE, DISCONTINUED THE DAY AFTER DISCONT
  14. PERINDOPRIL [Concomitant]
     Active Substance: PERINDOPRIL
     Indication: Ischaemic cardiomyopathy
  15. ASPIRIN [Concomitant]
     Active Substance: ASPIRIN
     Indication: Acute myocardial infarction
     Dosage: 1X1, LONG-TERM THERAPY

REACTIONS (3)
  - Steroid diabetes [Recovering/Resolving]
  - Gout [Recovering/Resolving]
  - Acute kidney injury [Unknown]
